FAERS Safety Report 6379082-6 (Version None)
Quarter: 2009Q3

REPORT INFORMATION
  Report Type: 
  Country: None (occurrence: None)
  Receive Date: 20090928
  Receipt Date: 20090923
  Transmission Date: 20100115
  Serious: Yes (Hospitalization)
  Sender: FDA-Public Use
  Company Number: US-BAYER-200836091NA

PATIENT
  Age: 40 Year
  Sex: Female
  Weight: 77 kg

DRUGS (24)
  1. SORAFENIB [Suspect]
     Indication: CERVIX CARCINOMA STAGE IV
     Dosage: TOTAL DAILY DOSE: 400 MG  UNIT DOSE: 200 MG
     Route: 048
     Dates: start: 20080529, end: 20081011
  2. AVASTIN [Suspect]
     Indication: CERVIX CARCINOMA STAGE IV
     Route: 042
     Dates: start: 20080529, end: 20081009
  3. PACLITAXEL [Suspect]
     Indication: CERVIX CARCINOMA STAGE IV
     Dosage: AS USED: 80 MG/M2
     Route: 042
     Dates: start: 20080529, end: 20080529
  4. PACLITAXEL [Suspect]
     Dosage: AS USED: 80 MG/M2
     Route: 042
     Dates: start: 20080605, end: 20080605
  5. PACLITAXEL [Suspect]
     Dosage: AS USED: 80 MG/M2
     Route: 042
     Dates: start: 20080612, end: 20080612
  6. PACLITAXEL [Suspect]
     Dosage: AS USED: 80 MG/M2
     Route: 042
     Dates: start: 20080710, end: 20080710
  7. PACLITAXEL [Suspect]
     Dosage: AS USED: 80 MG/M2
     Route: 042
     Dates: start: 20080731, end: 20080731
  8. PACLITAXEL [Suspect]
     Dosage: AS USED: 80 MG/M2
     Route: 042
     Dates: start: 20080814, end: 20080814
  9. PACLITAXEL [Suspect]
     Dosage: AS USED: 80 MG/M2
     Route: 042
     Dates: start: 20080904, end: 20080904
  10. PACLITAXEL [Suspect]
     Dosage: AS USED: 80 MG/M2
     Route: 042
     Dates: start: 20080923, end: 20080923
  11. PACLITAXEL [Suspect]
     Dosage: AS USED: 80 MG/M2
     Route: 042
     Dates: start: 20081007, end: 20081007
  12. PACLITAXEL [Suspect]
     Dosage: AS USED: 80 MG/M2
     Route: 042
     Dates: start: 20080930, end: 20080930
  13. PACLITAXEL [Suspect]
     Dosage: AS USED: 80 MG/M2
     Route: 042
     Dates: start: 20080911, end: 20080911
  14. PACLITAXEL [Suspect]
     Dosage: AS USED: 80 MG/M2
     Route: 042
     Dates: start: 20080828, end: 20080828
  15. PACLITAXEL [Suspect]
     Dosage: AS USED: 80 MG/M2
     Route: 042
     Dates: start: 20080807, end: 20080807
  16. PACLITAXEL [Suspect]
     Dosage: AS USED: 80 MG/M2
     Route: 042
     Dates: start: 20080717, end: 20080717
  17. PACLITAXEL [Suspect]
     Dosage: AS USED: 80 MG/M2
     Route: 042
     Dates: start: 20080703, end: 20080703
  18. LEXAPRO [Concomitant]
     Indication: DEPRESSION
     Dosage: TOTAL DAILY DOSE: 10 MG
     Dates: start: 20070101
  19. VITAMIN B COMPLEX CAP [Concomitant]
     Indication: PROPHYLAXIS
     Dosage: TOTAL DAILY DOSE: 300 U
     Route: 048
     Dates: start: 20080525
  20. LEVAQUIN [Concomitant]
     Indication: PROPHYLAXIS URINARY TRACT INFECTION
     Dosage: TOTAL DAILY DOSE: 500 MG
     Route: 048
     Dates: start: 20080529, end: 20080609
  21. LEVAQUIN [Concomitant]
     Dosage: TOTAL DAILY DOSE: 500 MG
     Route: 048
     Dates: start: 20080811, end: 20080817
  22. ATIVAN [Concomitant]
     Indication: ANXIETY
     Route: 048
     Dates: start: 20070801
  23. XANAX [Concomitant]
     Indication: ANXIETY
     Route: 048
     Dates: start: 20080223
  24. ARANESP [Concomitant]
     Indication: ANAEMIA
     Route: 058
     Dates: start: 20081009

REACTIONS (1)
  - DEEP VEIN THROMBOSIS [None]
